FAERS Safety Report 19581284 (Version 1)
Quarter: 2021Q3

REPORT INFORMATION
  Report Type: Spontaneous
  Country: US (occurrence: US)
  Receive Date: 20210719
  Receipt Date: 20210719
  Transmission Date: 20211014
  Serious: No
  Sender: FDA-Public Use
  Company Number: US-PFIZER INC-2021847671

PATIENT
  Age: 64 Year
  Sex: Female
  Weight: 58.97 kg

DRUGS (2)
  1. TESSALON [Suspect]
     Active Substance: BENZONATATE
     Indication: COUGH
  2. TESSALON [Suspect]
     Active Substance: BENZONATATE
     Indication: COVID-19
     Dosage: UNK

REACTIONS (1)
  - Drug ineffective [Unknown]
